FAERS Safety Report 11160242 (Version 1)
Quarter: 2015Q2

REPORT INFORMATION
  Report Type: Spontaneous
  Country: PH (occurrence: PH)
  Receive Date: 20150603
  Receipt Date: 20150603
  Transmission Date: 20150821
  Serious: Yes (Hospitalization)
  Sender: FDA-Public Use
  Company Number: PH-009507513-1506PHL001346

PATIENT
  Age: 83 Year
  Sex: Female

DRUGS (4)
  1. THERABLOC [Concomitant]
     Dosage: UNK
  2. VASTAREL [Concomitant]
     Active Substance: TRIMETAZIDINE DIHYDROCHLORIDE
     Dosage: UNK
  3. FENOFIBRATE. [Concomitant]
     Active Substance: FENOFIBRATE
     Dosage: UNK
  4. JANUVIA [Suspect]
     Active Substance: SITAGLIPTIN PHOSPHATE
     Indication: DIABETES MELLITUS
     Dosage: 50 MG, QD
     Route: 048

REACTIONS (2)
  - Cholecystitis [Recovered/Resolved]
  - Abdominal pain upper [Recovered/Resolved]

NARRATIVE: CASE EVENT DATE: 20150420
